FAERS Safety Report 12012418 (Version 1)
Quarter: 2016Q1

REPORT INFORMATION
  Report Type: Report from Study
  Country: MW (occurrence: MW)
  Receive Date: 20160205
  Receipt Date: 20160205
  Transmission Date: 20160526
  Serious: Yes (Other)
  Sender: FDA-Public Use
  Company Number: MW-ABBVIE-16P-100-1551705-00

PATIENT
  Age: 34 Year
  Sex: Female

DRUGS (3)
  1. EPIVIR [Suspect]
     Active Substance: LAMIVUDINE
     Indication: HIV INFECTION
     Dosage: TAB/CAPS, ONE COURSE
     Route: 048
     Dates: start: 20120213
  2. VIREAD [Suspect]
     Active Substance: TENOFOVIR DISOPROXIL FUMARATE
     Indication: HIV INFECTION
     Dosage: TAB/CAPS, ONE COURSE
     Route: 065
     Dates: start: 20120113
  3. KALETRA [Suspect]
     Active Substance: LOPINAVIR\RITONAVIR
     Indication: HIV INFECTION
     Dosage: TAB/CAPS,ONE COURSE
     Route: 048
     Dates: start: 20110210

REACTIONS (3)
  - Abortion induced [Recovered/Resolved]
  - Foetal death [Unknown]
  - Exposure during pregnancy [Unknown]

NARRATIVE: CASE EVENT DATE: 20120119
